FAERS Safety Report 7327942-1 (Version None)
Quarter: 2011Q1

REPORT INFORMATION
  Report Type: 
  Country: None (occurrence: None)
  Receive Date: 20110218
  Receipt Date: 20110209
  Transmission Date: 20110831
  Serious: Yes (Hospitalization)
  Sender: FDA-Public Use
  Company Number: 2011-0398

PATIENT
  Age: 82 Year
  Sex: Female
  Weight: 72.5 kg

DRUGS (10)
  1. TEGRETOL [Suspect]
     Indication: PRODUCT USED FOR UNKNOWN INDICATION
     Dosage: 600 MT (200 MG, 3 IN 1 D), ORAL
     Route: 048
     Dates: start: 20110101
  2. SINEMET [Concomitant]
  3. ASPIRIN [Concomitant]
  4. MELOXICAM [Concomitant]
  5. EXELON [Concomitant]
  6. NAMENDA [Concomitant]
  7. REQUIP [Concomitant]
  8. VICODIN [Concomitant]
  9. APOKYN [Suspect]
     Indication: PARKINSON'S DISEASE
     Dosage: 0.4 ML 2-TO--3 TIMES PER DAY (0.4 ML,2-3 TIMES DAILY) ,SUBCUTANEOUS, (0.2 M1,2-3 TIMES DAILY),SUBCUT
     Route: 058
     Dates: start: 20100101
  10. AZILECT [Concomitant]

REACTIONS (3)
  - INJECTION SITE SWELLING [None]
  - SOMNOLENCE [None]
  - UNRESPONSIVE TO STIMULI [None]
